FAERS Safety Report 11047129 (Version 1)
Quarter: 2015Q2

REPORT INFORMATION
  Report Type: Spontaneous
  Country: NO (occurrence: None)
  Receive Date: 20150416
  Receipt Date: 20150416
  Transmission Date: 20150821
  Serious: Yes (Hospitalization)
  Sender: FDA-Public Use
  Company Number: 2821811

PATIENT
  Age: 64 Year
  Sex: Male

DRUGS (8)
  1. LIPITOR [Concomitant]
     Active Substance: ATORVASTATIN CALCIUM
  2. OXALIPLATIN. [Suspect]
     Active Substance: OXALIPLATIN
     Indication: COLON CANCER
     Dosage: 6TH TREATMENT CYCLE OF THE FLOX REGIMEN
     Route: 041
  3. LAMOTRIGINE. [Concomitant]
     Active Substance: LAMOTRIGINE
  4. VALPROIC ACID. [Concomitant]
     Active Substance: VALPROIC ACID
  5. DIPYRIDAMOLE. [Concomitant]
     Active Substance: DIPYRIDAMOLE
  6. ZOPICLONE [Concomitant]
     Active Substance: ZOPICLONE
  7. FLUROURACIL [Concomitant]
     Active Substance: FLUOROURACIL
  8. ACETYLSALICYLIC ACID [Concomitant]
     Active Substance: ASPIRIN

REACTIONS (4)
  - Cytokine release syndrome [None]
  - Thrombocytopenia [None]
  - Dyspnoea [None]
  - Pyrexia [None]

NARRATIVE: CASE EVENT DATE: 20150316
